FAERS Safety Report 18404347 (Version 1)
Quarter: 2020Q4

REPORT INFORMATION
  Report Type: Spontaneous
  Country: US (occurrence: US)
  Receive Date: 20201020
  Receipt Date: 20201020
  Transmission Date: 20210114
  Serious: No
  Sender: FDA-Public Use
  Company Number: None

PATIENT
  Age: 80 Year
  Sex: Male

DRUGS (1)
  1. PROCRIT [Suspect]
     Active Substance: ERYTHROPOIETIN
     Indication: CORNEAL DISORDER
     Route: 058
     Dates: start: 202010

REACTIONS (1)
  - Dialysis [None]

NARRATIVE: CASE EVENT DATE: 20201012
